FAERS Safety Report 15386304 (Version 1)
Quarter: 2018Q3

REPORT INFORMATION
  Report Type: Spontaneous
  Country: BR (occurrence: BR)
  Receive Date: 20180914
  Receipt Date: 20180914
  Transmission Date: 20181010
  Serious: Yes (Other)
  Sender: FDA-Public Use
  Company Number: BR-PFIZER INC-2015122255

PATIENT
  Age: 57 Year
  Sex: Female
  Weight: 97 kg

DRUGS (3)
  1. LORAX [Suspect]
     Active Substance: LORAZEPAM
     Indication: INSOMNIA
  2. LORAX [Suspect]
     Active Substance: LORAZEPAM
     Indication: CARDIAC DISORDER
     Dosage: UNK
     Route: 048
     Dates: start: 1995
  3. LORAX [Suspect]
     Active Substance: LORAZEPAM
     Indication: ARRHYTHMIA
     Dosage: 4 PER DAY
     Route: 048
     Dates: start: 2010

REACTIONS (2)
  - Infarction [Unknown]
  - Feeling abnormal [Unknown]
